FAERS Safety Report 25621780 (Version 1)
Quarter: 2025Q3

REPORT INFORMATION
  Report Type: Spontaneous
  Country: US (occurrence: None)
  Receive Date: 20250729
  Receipt Date: 20250729
  Transmission Date: 20251021
  Serious: Yes (Hospitalization)
  Sender: FDA-CTU
  Company Number: None

PATIENT
  Sex: Female

DRUGS (3)
  1. OPSUMIT [Suspect]
     Active Substance: MACITENTAN
     Indication: Pulmonary arterial hypertension
     Dosage: FREQUENCY : DAILY;?
     Route: 048
     Dates: start: 20250325
  2. SILDENAFIL [Suspect]
     Active Substance: SILDENAFIL
  3. UPTRAVI (MNTH 2 TITR) [Concomitant]

REACTIONS (4)
  - Systemic scleroderma [None]
  - Hyponatraemia [None]
  - Right ventricular failure [None]
  - Diarrhoea [None]
